FAERS Safety Report 10488874 (Version 3)
Quarter: 2015Q4

REPORT INFORMATION
  Report Type: Report from Study
  Country: US (occurrence: US)
  Receive Date: 20141002
  Receipt Date: 20151030
  Transmission Date: 20160304
  Serious: Yes (Other)
  Sender: FDA-Public Use
  Company Number: US-JNJFOC-20140918689

PATIENT
  Sex: Female

DRUGS (5)
  1. BISOPROLOL HYDROCHLOROTHIAZIDE [Concomitant]
     Route: 065
  2. FENOBIBRATE [Concomitant]
     Indication: BLOOD TRIGLYCERIDES
     Route: 065
  3. REMICADE [Suspect]
     Active Substance: INFLIXIMAB
     Indication: CROHN^S DISEASE
     Route: 042
  4. CYMBALTA [Concomitant]
     Active Substance: DULOXETINE HYDROCHLORIDE
     Route: 065
  5. REMICADE [Suspect]
     Active Substance: INFLIXIMAB
     Indication: INFLAMMATORY BOWEL DISEASE
     Route: 042

REACTIONS (6)
  - Cellulitis [Recovering/Resolving]
  - Intestinal resection [Recovering/Resolving]
  - Squamous cell carcinoma [Recovering/Resolving]
  - Rheumatoid arthritis [Recovering/Resolving]
  - Immune system disorder [Recovering/Resolving]
  - Hypoaesthesia [Recovering/Resolving]
